FAERS Safety Report 6896607-2 (Version None)
Quarter: 2010Q3

REPORT INFORMATION
  Report Type: 
  Country: None (occurrence: None)
  Receive Date: 20100802
  Receipt Date: 20070108
  Transmission Date: 20110219
  Serious: No
  Sender: FDA-Public Use
  Company Number: US-PFIZER INC-2006130368

PATIENT
  Sex: Male
  Weight: 104.33 kg

DRUGS (14)
  1. LYRICA [Suspect]
     Indication: MIGRAINE
     Dates: start: 20060101
  2. FROVA [Concomitant]
     Indication: MIGRAINE
  3. PARAFLEX [Concomitant]
     Indication: MIGRAINE
  4. PERCOCET [Concomitant]
     Indication: MIGRAINE
  5. FOSAMAX [Concomitant]
     Indication: OSTEOPOROSIS
  6. MENCALISVIT [Concomitant]
  7. TUMS [Concomitant]
  8. SONATA [Concomitant]
     Indication: INSOMNIA
  9. AMBIEN [Concomitant]
     Indication: INSOMNIA
  10. HYTRIN [Concomitant]
     Indication: PROSTATOMEGALY
  11. MULTIVITAMIN [Concomitant]
     Indication: EYE DISORDER
  12. CENTRUM A TO ZINC [Concomitant]
  13. CYANOCOBALAMIN [Concomitant]
     Indication: IRON DEFICIENCY
  14. CITRUCEL [Concomitant]

REACTIONS (2)
  - EYE INFECTION VIRAL [None]
  - VISION BLURRED [None]
